FAERS Safety Report 24129544 (Version 1)
Quarter: 2024Q3

REPORT INFORMATION
  Report Type: Spontaneous
  Country: US (occurrence: US)
  Receive Date: 20240723
  Receipt Date: 20240723
  Transmission Date: 20241017
  Serious: Yes (Other)
  Sender: BRISTOL MYERS SQUIBB
  Company Number: US-BRISTOL-MYERS SQUIBB COMPANY-2024-111413

PATIENT
  Age: 71 Year
  Sex: Female

DRUGS (1)
  1. ZEPOSIA [Suspect]
     Active Substance: OZANIMOD HYDROCHLORIDE
     Indication: Multiple sclerosis
     Dosage: DOSE : UNKNOWN;     FREQ : ONCE A DAY
     Route: 048
     Dates: end: 20240710

REACTIONS (3)
  - Neuropathy peripheral [Unknown]
  - Central nervous system lesion [Unknown]
  - Drug ineffective [Unknown]
